FAERS Safety Report 5524650-4 (Version None)
Quarter: 2007Q4

REPORT INFORMATION
  Report Type: 
  Country: None (occurrence: None)
  Receive Date: 20071123
  Receipt Date: 20071116
  Transmission Date: 20080405
  Serious: Yes (Other)
  Sender: FDA-Public Use
  Company Number: US-SHR-US-2006-034070

PATIENT
  Age: 47 Year
  Sex: Female

DRUGS (1)
  1. BETASERON [Suspect]
     Indication: MULTIPLE SCLEROSIS
     Dosage: 8 MIU, EVERY 2D
     Route: 058
     Dates: start: 20050506, end: 20070619

REACTIONS (6)
  - ARTHRALGIA [None]
  - DISEASE RECURRENCE [None]
  - FUNGAL INFECTION [None]
  - HYPOREFLEXIA [None]
  - URINARY TRACT INFECTION [None]
  - WEIGHT INCREASED [None]
